FAERS Safety Report 6056629-0 (Version None)
Quarter: 2009Q1

REPORT INFORMATION
  Report Type: 
  Country: None (occurrence: None)
  Receive Date: 20090126
  Receipt Date: 20090126
  Transmission Date: 20090719
  Serious: No
  Sender: FDA-Public Use
  Company Number: None

PATIENT
  Sex: Female
  Weight: 81.6475 kg

DRUGS (1)
  1. CYCLOBENZAPRINE [Suspect]
     Indication: FIBROMYALGIA
     Dosage: 20 MG BID PO
     Route: 048
     Dates: start: 20081215, end: 20090115

REACTIONS (2)
  - DRUG EFFECT DECREASED [None]
  - MUSCLE SPASMS [None]
